FAERS Safety Report 20183868 (Version 3)
Quarter: 2022Q1

REPORT INFORMATION
  Report Type: Other
  Country: US (occurrence: None)
  Receive Date: 20211214
  Receipt Date: 20220228
  Transmission Date: 20220423
  Serious: Yes (Hospitalization)
  Sender: FDA-Public Use
  Company Number: US-ROCHE-2976331

PATIENT
  Age: 48 Year
  Sex: Female
  Weight: 82.628 kg

DRUGS (22)
  1. OCREVUS [Suspect]
     Active Substance: OCRELIZUMAB
     Indication: Secondary progressive multiple sclerosis
     Route: 042
     Dates: start: 2019, end: 20191212
  2. MIRALAX [Concomitant]
     Active Substance: POLYETHYLENE GLYCOL 3350
  3. MOMETASONE [Concomitant]
     Active Substance: MOMETASONE
  4. OMEPRAZOLE [Concomitant]
     Active Substance: OMEPRAZOLE
  5. TYLENOL [Concomitant]
     Active Substance: ACETAMINOPHEN
  6. VITAMIN C [Concomitant]
     Active Substance: ASCORBIC ACID
  7. LEVAQUIN [Concomitant]
     Active Substance: LEVOFLOXACIN
     Dosage: TAKE BY MOUTH ONE TIME PER DAY
  8. SPIRONOLACTONE [Concomitant]
     Active Substance: SPIRONOLACTONE
  9. TRIAMCINOLONE [Concomitant]
     Active Substance: TRIAMCINOLONE
  10. RANITIDINE [Concomitant]
     Active Substance: RANITIDINE
  11. FAMOTIDINE [Concomitant]
     Active Substance: FAMOTIDINE
  12. ALPRAZOLAM [Concomitant]
     Active Substance: ALPRAZOLAM
  13. PANTOPRAZOLE [Concomitant]
     Active Substance: PANTOPRAZOLE
  14. GABAPENTIN [Concomitant]
     Active Substance: GABAPENTIN
  15. CITALOPRAM [Concomitant]
     Active Substance: CITALOPRAM HYDROBROMIDE
  16. BACLOFEN [Concomitant]
     Active Substance: BACLOFEN
  17. NEOMYCIN [Concomitant]
     Active Substance: NEOMYCIN
  18. ACETIC ACID [Concomitant]
     Active Substance: ACETIC ACID
  19. OXYBUTYNIN CHLORIDE [Concomitant]
     Active Substance: OXYBUTYNIN CHLORIDE
  20. ACETAMINOPHEN [Concomitant]
     Active Substance: ACETAMINOPHEN
     Route: 048
  21. ASCORBIC ACID [Concomitant]
     Active Substance: ASCORBIC ACID
  22. GUAIFENESIN [Concomitant]
     Active Substance: GUAIFENESIN

REACTIONS (5)
  - COVID-19 [Recovered/Resolved]
  - Hypokinesia [Not Recovered/Not Resolved]
  - Bronchitis [Recovered/Resolved]
  - Skin infection [Unknown]
  - Ataxia [Unknown]

NARRATIVE: CASE EVENT DATE: 20200120
